FAERS Safety Report 5882112-9 (Version None)
Quarter: 2008Q3

REPORT INFORMATION
  Report Type: 
  Country: None (occurrence: None)
  Receive Date: 20080912
  Receipt Date: 20080725
  Transmission Date: 20090109
  Serious: No
  Sender: FDA-Public Use
  Company Number: US-ABBOTT-08P-163-0465600-00

PATIENT
  Sex: Male
  Weight: 52.21 kg

DRUGS (3)
  1. HUMIRA [Suspect]
     Indication: RHEUMATOID ARTHRITIS
     Route: 058
     Dates: start: 20080718
  2. IRON [Concomitant]
     Indication: BLOOD IRON DECREASED
     Route: 042
  3. IRON [Concomitant]
     Route: 048

REACTIONS (5)
  - CHILLS [None]
  - HYPERHIDROSIS [None]
  - INJECTION SITE ERYTHEMA [None]
  - INJECTION SITE WARMTH [None]
  - PYREXIA [None]
